FAERS Safety Report 7205847-4 (Version None)
Quarter: 2010Q4

REPORT INFORMATION
  Report Type: 
  Country: None (occurrence: None)
  Receive Date: 20101231
  Receipt Date: 20101228
  Transmission Date: 20110411
  Serious: Yes (Hospitalization, Other)
  Sender: FDA-Public Use
  Company Number: US-PFIZER INC-2010180094

PATIENT
  Sex: Female
  Weight: 72.574 kg

DRUGS (5)
  1. REVATIO [Suspect]
     Indication: PULMONARY HYPERTENSION
     Dosage: 20 MG, 3X/DAY
  2. AMBRISENTAN [Concomitant]
  3. SYNTHROID [Concomitant]
  4. NARDIL [Concomitant]
  5. ALENDRONATE SODIUM [Concomitant]

REACTIONS (6)
  - BACTERIAL INFECTION [None]
  - CARDIAC SEPTAL DEFECT [None]
  - CENTRAL NERVOUS SYSTEM LESION [None]
  - CONVULSION [None]
  - PNEUMONIA [None]
  - THROMBOSIS [None]
